FAERS Safety Report 7317845-0 (Version None)
Quarter: 2011Q1

REPORT INFORMATION
  Report Type: 
  Country: None (occurrence: None)
  Receive Date: 20110226
  Receipt Date: 20110104
  Transmission Date: 20110831
  Serious: No
  Sender: FDA-Public Use
  Company Number: US-ALLERGAN-1016385US

PATIENT
  Age: 51 Year
  Sex: Female

DRUGS (5)
  1. BOTOX COSMETIC [Suspect]
     Indication: SKIN WRINKLING
     Dosage: UNK
     Dates: start: 20101123, end: 20101123
  2. WELLBUTRIN [Concomitant]
     Indication: ANXIETY
  3. WELLBUTRIN [Concomitant]
     Indication: DEPRESSION
     Dosage: 300 MG, QD
     Route: 048
  4. WELLBUTRIN [Concomitant]
     Indication: SMOKING CESSATION THERAPY
  5. MULTI-VITAMIN [Concomitant]
     Indication: VITAMIN SUPPLEMENTATION
     Dosage: 1 TABLET DAILY
     Route: 048

REACTIONS (23)
  - HYPERTENSION [None]
  - ABNORMAL SENSATION IN EYE [None]
  - SWELLING FACE [None]
  - POLLAKIURIA [None]
  - DRY EYE [None]
  - EYELID PTOSIS [None]
  - PYREXIA [None]
  - HYPOAESTHESIA ORAL [None]
  - HYPOAESTHESIA FACIAL [None]
  - PAIN [None]
  - FACIAL PAIN [None]
  - VISION BLURRED [None]
  - FACIAL PARESIS [None]
  - VEIN DISORDER [None]
  - ORAL DISCHARGE [None]
  - THIRST [None]
  - SENSORY DISTURBANCE [None]
  - SKIN DISCOLOURATION [None]
  - ERYTHEMA [None]
  - INFLUENZA LIKE ILLNESS [None]
  - INJECTION SITE REACTION [None]
  - INJECTION SITE PAIN [None]
  - HEADACHE [None]
